FAERS Safety Report 4341578-6 (Version None)
Quarter: 2004Q2

REPORT INFORMATION
  Report Type: 
  Country: None (occurrence: None)
  Receive Date: 20040419
  Receipt Date: 20040419
  Transmission Date: 20050107
  Serious: No
  Sender: FDA-Public Use
  Company Number: None

PATIENT
  Sex: Female

DRUGS (1)
  1. IMITREX [Suspect]
     Indication: HEADACHE
     Dosage: 6 MG X1 SQ
     Route: 058

REACTIONS (4)
  - BLOOD PRESSURE INCREASED [None]
  - COMA [None]
  - GRAND MAL CONVULSION [None]
  - MENTAL DISORDER [None]
